FAERS Safety Report 15902875 (Version 1)
Quarter: 2019Q1

REPORT INFORMATION
  Report Type: Spontaneous
  Country: GB (occurrence: GB)
  Receive Date: 20190202
  Receipt Date: 20190202
  Transmission Date: 20190417
  Serious: Yes (Disabling, Other)
  Sender: FDA-Public Use
  Company Number: GB-ACCORD-104252

PATIENT
  Age: 52 Year
  Sex: Male

DRUGS (1)
  1. ENTECAVIR. [Suspect]
     Active Substance: ENTECAVIR
     Indication: ACUTE HEPATITIS B
     Route: 048
     Dates: start: 201707, end: 201708

REACTIONS (2)
  - Blindness unilateral [Recovered/Resolved]
  - Retinal toxicity [Recovered/Resolved]

NARRATIVE: CASE EVENT DATE: 20170818
